FAERS Safety Report 9870095 (Version 2)
Quarter: 2014Q2

REPORT INFORMATION
  Report Type: Spontaneous
  Country: US (occurrence: US)
  Receive Date: 20140205
  Receipt Date: 20140509
  Transmission Date: 20141212
  Serious: No
  Sender: FDA-Public Use
  Company Number: US-BAUSCH-BL-2014-000236

PATIENT
  Sex: Female

DRUGS (1)
  1. LOTEPREDNOL ETABONATE OPHTHALMIC OINTMENT 0.5% [Suspect]
     Indication: EYE DISORDER
     Route: 047
     Dates: start: 20131217

REACTIONS (2)
  - Drug ineffective [Not Recovered/Not Resolved]
  - Eye irritation [Unknown]
